FAERS Safety Report 4342817-8 (Version None)
Quarter: 2004Q2

REPORT INFORMATION
  Report Type: 
  Country: None (occurrence: None)
  Receive Date: 20040416
  Receipt Date: 20040401
  Transmission Date: 20050107
  Serious: Yes (Other)
  Sender: FDA-Public Use
  Company Number: ATO-04-0310

PATIENT
  Age: 79 Year
  Sex: Male

DRUGS (1)
  1. TRISENOX [Suspect]
     Indication: MYELODYSPLASTIC SYNDROME
     Dosage: (3 WKS ON, 1 WK OFF; 2 WKS ON, 1 WK OFF)

REACTIONS (1)
  - NEUROPATHY PERIPHERAL [None]
